FAERS Safety Report 5255091-5 (Version None)
Quarter: 2007Q1

REPORT INFORMATION
  Report Type: 
  Country: None (occurrence: None)
  Receive Date: 20070305
  Receipt Date: 20070221
  Transmission Date: 20070707
  Serious: Yes (Disabling, Other)
  Sender: FDA-Public Use
  Company Number: PHNU2007SI00987

PATIENT
  Sex: Male

DRUGS (8)
  1. SANDIMMUNE [Suspect]
     Indication: UVEITIS
     Dosage: 200 MG, BID
     Route: 048
     Dates: start: 19990101
  2. SANDIMMUNE [Suspect]
     Dosage: 250MG/DAY
     Route: 048
     Dates: start: 20010101
  3. SANDIMMUNE [Suspect]
     Dosage: 100 MG, BID
     Route: 048
     Dates: start: 20050101
  4. SANDIMMUNE [Suspect]
     Dosage: 150 MG/DAY
     Route: 048
     Dates: start: 20060101
  5. SANDIMMUNE [Suspect]
     Dosage: 125 MG/DAY
     Route: 048
  6. ULTOP [Concomitant]
     Dosage: 20MG/DAY
  7. CACO3 [Concomitant]
  8. MEDROL [Suspect]
     Indication: UVEITIS
     Dosage: 6MG/DAY
     Dates: start: 19970101

REACTIONS (8)
  - BRADYKINESIA [None]
  - CEREBRAL ATROPHY [None]
  - CORNEAL GRAFT REJECTION [None]
  - EXTRAPYRAMIDAL DISORDER [None]
  - KERATITIS [None]
  - MUSCLE RIGIDITY [None]
  - MUSCULOSKELETAL STIFFNESS [None]
  - TREMOR [None]
